FAERS Safety Report 17171423 (Version 2)
Quarter: 2020Q3

REPORT INFORMATION
  Report Type: Spontaneous
  Country: US (occurrence: US)
  Receive Date: 20191218
  Receipt Date: 20200721
  Transmission Date: 20201102
  Serious: Yes (Hospitalization, Other)
  Sender: FDA-Public Use
  Company Number: US-ASTRAZENECA-2019SF82561

PATIENT
  Age: 65 Year
  Sex: Female
  Weight: 100.7 kg

DRUGS (34)
  1. TOBRAMYCIN. [Concomitant]
     Active Substance: TOBRAMYCIN
  2. VIGAMOX [Concomitant]
     Active Substance: MOXIFLOXACIN HYDROCHLORIDE
  3. ACIPHEX [Concomitant]
     Active Substance: RABEPRAZOLE SODIUM
  4. OXYCODONE?ACETAMINOPHEN [Concomitant]
     Active Substance: ACETAMINOPHEN\OXYCODONE HYDROCHLORIDE
  5. VITAMIN D3 [Concomitant]
     Active Substance: CHOLECALCIFEROL
  6. NEXIUM [Suspect]
     Active Substance: ESOMEPRAZOLE MAGNESIUM
     Indication: GASTROOESOPHAGEAL REFLUX DISEASE
     Route: 048
     Dates: start: 200504, end: 201706
  7. NEXIUM [Suspect]
     Active Substance: ESOMEPRAZOLE MAGNESIUM
     Indication: GASTROOESOPHAGEAL REFLUX DISEASE
     Route: 048
     Dates: start: 2011, end: 2017
  8. GABAPENTIN. [Concomitant]
     Active Substance: GABAPENTIN
     Indication: ANALGESIC THERAPY
     Dates: start: 2017
  9. METRONIDAZOLE. [Concomitant]
     Active Substance: METRONIDAZOLE
  10. DONNATAL [Concomitant]
     Active Substance: ATROPINE SULFATE\HYOSCYAMINE SULFATE\PHENOBARBITAL\SCOPOLAMINE HYDROBROMIDE
  11. FLONASE [Concomitant]
     Active Substance: FLUTICASONE PROPIONATE
  12. BELLADONNA [Concomitant]
     Active Substance: ATROPA BELLADONNA\HOMEOPATHICS
  13. IBUPROFEN. [Concomitant]
     Active Substance: IBUPROFEN
     Indication: ANALGESIC THERAPY
     Dates: start: 2005, end: 2012
  14. NASONEX [Concomitant]
     Active Substance: MOMETASONE FUROATE
  15. ETODOLAC. [Concomitant]
     Active Substance: ETODOLAC
  16. NEXIUM [Suspect]
     Active Substance: ESOMEPRAZOLE MAGNESIUM
     Indication: GASTROOESOPHAGEAL REFLUX DISEASE
     Route: 048
     Dates: start: 20120207
  17. ZALEPLON. [Concomitant]
     Active Substance: ZALEPLON
  18. LOTEMAX [Concomitant]
     Active Substance: LOTEPREDNOL ETABONATE
  19. CHANTIX [Concomitant]
     Active Substance: VARENICLINE TARTRATE
  20. CHERATUSSIN [Concomitant]
     Active Substance: AMMONIUM CHLORIDE\DEXTROMETHORPHAN\SODIUM CITRATE
  21. CIPROFLOXACIN. [Concomitant]
     Active Substance: CIPROFLOXACIN
     Indication: INFECTION
     Dates: start: 2009, end: 2017
  22. POLYMYXIN [Concomitant]
     Active Substance: POLYMYXIN
  23. ALLOPURINOL. [Concomitant]
     Active Substance: ALLOPURINOL
  24. PROAIR HFA [Concomitant]
     Active Substance: ALBUTEROL SULFATE
  25. AZITHROMYCIN ANHYDROUS. [Concomitant]
     Active Substance: AZITHROMYCIN ANHYDROUS
  26. CLINDAMYCIN. [Concomitant]
     Active Substance: CLINDAMYCIN
  27. ONDANSETRON [Concomitant]
     Active Substance: ONDANSETRON
  28. DUREZOL [Concomitant]
     Active Substance: DIFLUPREDNATE
  29. TRIAZOLAM. [Concomitant]
     Active Substance: TRIAZOLAM
  30. FISH OIL [Concomitant]
     Active Substance: FISH OIL
  31. LISINOPRIL. [Concomitant]
     Active Substance: LISINOPRIL
     Indication: HYPERTENSION
     Dates: start: 2017
  32. ERYTHROMYCIN. [Concomitant]
     Active Substance: ERYTHROMYCIN
  33. ALPRAZOLAM. [Concomitant]
     Active Substance: ALPRAZOLAM
  34. DAYPRO [Concomitant]
     Active Substance: OXAPROZIN

REACTIONS (2)
  - Acute kidney injury [Unknown]
  - Chronic kidney disease [Not Recovered/Not Resolved]

NARRATIVE: CASE EVENT DATE: 2016
